FAERS Safety Report 8764398 (Version 2)
Quarter: 2013Q1

REPORT INFORMATION
  Report Type: Spontaneous
  Country: BR (occurrence: BR)
  Receive Date: 20120831
  Receipt Date: 20130201
  Transmission Date: 20140127
  Serious: Yes (Hospitalization, Other)
  Sender: FDA-Public Use
  Company Number: PHHY2012BR074645

PATIENT
  Sex: Female
  Weight: 68 kg

DRUGS (6)
  1. EXELON [Suspect]
     Indication: DEPRESSION
     Dosage: 1.5 MG, QD
     Route: 048
     Dates: start: 2011, end: 2012
  2. OLCADIL [Suspect]
     Indication: DEPRESSION
     Dosage: 1 MG QD
     Route: 048
     Dates: start: 2012
  3. ATENOLOL [Concomitant]
  4. HYDROCHLOROTHIAZIDE [Concomitant]
  5. LOSARTAN [Concomitant]
  6. FLUOXETINE [Concomitant]

REACTIONS (10)
  - Cerebrovascular accident [Recovered/Resolved with Sequelae]
  - Hypertension [Recovering/Resolving]
  - Depression [Not Recovered/Not Resolved]
  - Crying [Not Recovered/Not Resolved]
  - Mental disorder [Not Recovered/Not Resolved]
  - Abasia [Not Recovered/Not Resolved]
  - Muscular weakness [Not Recovered/Not Resolved]
  - Feeling abnormal [Not Recovered/Not Resolved]
  - Neck pain [Recovered/Resolved]
  - Back pain [Recovered/Resolved]
